FAERS Safety Report 11429458 (Version 2)
Quarter: 2015Q3

REPORT INFORMATION
  Report Type: Spontaneous
  Country: US (occurrence: US)
  Receive Date: 20150828
  Receipt Date: 20150916
  Transmission Date: 20151125
  Serious: Yes (Hospitalization)
  Sender: FDA-Public Use
  Company Number: US-SUN PHARMACEUTICAL INDUSTRIES LTD-2015US-101989

PATIENT
  Sex: Female

DRUGS (1)
  1. ZONISAMIDE. [Suspect]
     Active Substance: ZONISAMIDE
     Indication: SEIZURE
     Dosage: UNK
     Route: 065
     Dates: start: 2012, end: 20150223

REACTIONS (8)
  - Drug ineffective [Unknown]
  - Hyperhidrosis [Unknown]
  - Menopause [Unknown]
  - Cognitive disorder [Recovered/Resolved]
  - Urinary tract disorder [Unknown]
  - Pollakiuria [Unknown]
  - Therapy cessation [Unknown]
  - Alopecia [Unknown]

NARRATIVE: CASE EVENT DATE: 2012
